FAERS Safety Report 4823357-6 (Version None)
Quarter: 2005Q4

REPORT INFORMATION
  Report Type: 
  Country: None (occurrence: None)
  Receive Date: 20051107
  Receipt Date: 20051024
  Transmission Date: 20060501
  Serious: Yes (Other)
  Sender: FDA-Public Use
  Company Number: 2005145794

PATIENT
  Sex: Female

DRUGS (1)
  1. VISINE II EYE DROPS [Suspect]
     Indication: OCULAR HYPERAEMIA
     Dosage: AMOUNT DAILY, OPHTHALMIC
     Route: 047

REACTIONS (2)
  - DRUG DEPENDENCE [None]
  - LACRIMATION INCREASED [None]
